FAERS Safety Report 6718027-3 (Version None)
Quarter: 2010Q2

REPORT INFORMATION
  Report Type: 
  Country: None (occurrence: None)
  Receive Date: 20100510
  Receipt Date: 20100429
  Transmission Date: 20101027
  Serious: Yes (Other)
  Sender: FDA-Public Use
  Company Number: PHHY2010US28258

PATIENT

DRUGS (1)
  1. EXELON [Suspect]

REACTIONS (1)
  - CYANOSIS [None]
